FAERS Safety Report 4837506-7 (Version None)
Quarter: 2005Q4

REPORT INFORMATION
  Report Type: 
  Country: None (occurrence: None)
  Receive Date: 20051128
  Receipt Date: 20051121
  Transmission Date: 20060501
  Serious: Yes (Hospitalization)
  Sender: FDA-Public Use
  Company Number: 423746

PATIENT
  Age: 76 Year
  Sex: Female

DRUGS (4)
  1. ARTIST [Suspect]
     Indication: HYPERTENSION
     Dosage: 10MG PER DAY
     Route: 048
     Dates: start: 20041116, end: 20050711
  2. ALFAROL [Concomitant]
     Dates: start: 19980216, end: 20050711
  3. ALLOPURINOL [Concomitant]
     Dates: start: 19970124, end: 20050711
  4. UNSPECIFIED DRUG [Concomitant]
     Dates: start: 20050614, end: 20050711

REACTIONS (11)
  - AKINESIA [None]
  - ATRIOVENTRICULAR BLOCK [None]
  - CARDIAC FAILURE ACUTE [None]
  - CHEST PAIN [None]
  - DYSPNOEA [None]
  - FATIGUE [None]
  - HEART RATE DECREASED [None]
  - MITRAL VALVE INCOMPETENCE [None]
  - PLEURAL EFFUSION [None]
  - PULMONARY CONGESTION [None]
  - TRICUSPID VALVE INCOMPETENCE [None]
